FAERS Safety Report 7681100 (Version 4)
Quarter: 2013Q1

REPORT INFORMATION
  Report Type: Report from Study
  Country: CA (occurrence: CA)
  Receive Date: 20101123
  Receipt Date: 20130215
  Transmission Date: 20140127
  Serious: Yes (Hospitalization, Other)
  Sender: FDA-Public Use
  Company Number: CA-ABBOTT-10P-028-0686651-00

PATIENT
  Sex: Female
  Weight: 88.98 kg

DRUGS (22)
  1. HUMIRA 40 MG/0.8 ML PEN [Suspect]
     Indication: PSORIATIC ARTHROPATHY
     Dosage: ONLY TWO DOSES ON: END OF JUNE 2010 AND 13-JUL-2010
     Route: 058
  2. METHOTREXATE [Suspect]
     Indication: PRODUCT USED FOR UNKNOWN INDICATION
  3. CYCLOBENZAPRINE [Concomitant]
     Indication: PRODUCT USED FOR UNKNOWN INDICATION
     Dosage: 10 MG DAILY
     Route: 048
  4. TYLENOL ARTHRITIS [Concomitant]
     Indication: PAIN
     Dosage: 6 TABLETS DAILY
     Route: 048
  5. ALENDRONATE [Concomitant]
     Indication: OSTEOPOROSIS
     Route: 048
     Dates: start: 20100920
  6. DILAUDID [Concomitant]
     Indication: PRODUCT USED FOR UNKNOWN INDICATION
     Dosage: 2 MG DAILY
     Route: 048
  7. CARBOCAL [Concomitant]
     Indication: PRODUCT USED FOR UNKNOWN INDICATION
     Dosage: 500MG WITH 400IU
     Route: 048
     Dates: start: 20091013
  8. NOVO-HYDROXYQUINE [Concomitant]
     Indication: PRODUCT USED FOR UNKNOWN INDICATION
     Route: 048
  9. HYDROMORPH CONTIN [Concomitant]
     Indication: PRODUCT USED FOR UNKNOWN INDICATION
     Dosage: 18 MG DAILY
     Route: 048
  10. GLUCOPHAGE [Concomitant]
     Indication: DIABETES MELLITUS
     Dosage: 500 MG DAILY
     Route: 048
  11. PAROXETINE [Concomitant]
     Indication: DEPRESSION
     Dosage: 30 MG DAILY
     Route: 048
  12. LIPITOR [Concomitant]
     Indication: HYPERTENSION
     Dosage: 20 MG DAILY
     Route: 048
  13. PREDNISONE [Concomitant]
     Indication: ARTHRITIS
     Dosage: DIE
     Route: 048
     Dates: start: 20100920
  14. JAMP-ASA [Concomitant]
     Indication: PRODUCT USED FOR UNKNOWN INDICATION
     Dosage: 80 MG DAILY
     Route: 048
  15. AVANDIA [Concomitant]
     Indication: DIABETES MELLITUS
     Dosage: 4 MG DAILY
     Route: 048
  16. DIOVAN [Concomitant]
     Indication: HYPERTENSION
     Dosage: 80 MG DAILY
     Route: 048
  17. MIRAPEX [Concomitant]
     Indication: RESTLESS LEGS SYNDROME
     Dosage: 1 MG DAILY
     Route: 048
  18. PREVACID [Concomitant]
     Indication: PRODUCT USED FOR UNKNOWN INDICATION
     Dosage: 30 MG DAILY
     Route: 048
  19. LAMISIL [Concomitant]
     Indication: INFECTION
     Route: 061
  20. LOPERAMIDE [Concomitant]
     Indication: PRODUCT USED FOR UNKNOWN INDICATION
     Route: 048
  21. CALCIUM VITAMIN D [Concomitant]
     Indication: PRODUCT USED FOR UNKNOWN INDICATION
     Dosage: 500 MG AND 800 IU
     Dates: start: 20091013
  22. ANALGESIE [Concomitant]
     Indication: PRODUCT USED FOR UNKNOWN INDICATION

REACTIONS (10)
  - Pulmonary oedema [Unknown]
  - Arthropathy [Unknown]
  - Osteoarthritis [Unknown]
  - Pneumonia [Recovered/Resolved]
  - Dyspnoea [Recovered/Resolved]
  - Pseudomonas infection [Unknown]
  - Device related infection [Unknown]
  - Arthralgia [Unknown]
  - Thrombosis [Unknown]
  - Pseudomonas infection [Unknown]
